FAERS Safety Report 14192374 (Version 1)
Quarter: 2017Q4

REPORT INFORMATION
  Report Type: Spontaneous
  Country: US (occurrence: US)
  Receive Date: 20171116
  Receipt Date: 20171116
  Transmission Date: 20180321
  Serious: No
  Sender: FDA-Public Use
  Company Number: US-LUPIN PHARMACEUTICALS INC.-2017-02505

PATIENT
  Sex: Female

DRUGS (1)
  1. NORETHINDRONE. [Suspect]
     Active Substance: NORETHINDRONE
     Indication: CONTRACEPTION
     Dosage: UNK
     Route: 065

REACTIONS (2)
  - Inappropriate schedule of drug administration [Unknown]
  - No adverse event [Unknown]
